FAERS Safety Report 5610821-5 (Version None)
Quarter: 2008Q1

REPORT INFORMATION
  Report Type: 
  Country: None (occurrence: None)
  Receive Date: 20080201
  Receipt Date: 20080128
  Transmission Date: 20080703
  Serious: Yes (Other)
  Sender: FDA-Public Use
  Company Number: PHRM2008FR00726

PATIENT
  Age: 32 Year
  Sex: Male

DRUGS (1)
  1. TRILEPTAL [Suspect]
     Indication: MALAISE
     Dosage: 300 MG IN THE MORNING, 600 MG IN THE EVENING
     Route: 048
     Dates: start: 20061101

REACTIONS (1)
  - SPERMATOZOA PROGRESSIVE MOTILITY ABNORMAL [None]
